FAERS Safety Report 11809798 (Version 1)
Quarter: 2015Q4

REPORT INFORMATION
  Report Type: Spontaneous
  Country: JP (occurrence: JP)
  Receive Date: 20151208
  Receipt Date: 20151208
  Transmission Date: 20160305
  Serious: Yes (Hospitalization)
  Sender: FDA-Public Use
  Company Number: JP-CIPLA LTD.-2015JP09044

PATIENT

DRUGS (4)
  1. AMLODIPINE [Suspect]
     Active Substance: AMLODIPINE BESYLATE
     Dosage: 5 MG, UNK
     Route: 065
  2. SPIRONOLACTONE. [Suspect]
     Active Substance: SPIRONOLACTONE
     Dosage: 25 MG, UNK
     Route: 065
  3. WARFARIN [Suspect]
     Active Substance: WARFARIN
     Dosage: 1 MG, UNK
     Route: 065
  4. DONEPEZIL. [Suspect]
     Active Substance: DONEPEZIL
     Indication: DEMENTIA ALZHEIMER^S TYPE
     Dosage: 5 MG, UNK
     Route: 065

REACTIONS (12)
  - Nausea [Recovered/Resolved]
  - Adams-Stokes syndrome [Recovered/Resolved]
  - Fall [Unknown]
  - Arrhythmia [Recovered/Resolved]
  - Vomiting [Recovered/Resolved]
  - Torsade de pointes [Recovered/Resolved]
  - Syncope [Recovered/Resolved]
  - Ventricular fibrillation [Recovered/Resolved]
  - Bradycardia [Recovered/Resolved]
  - Back pain [Recovered/Resolved]
  - Thoracic vertebral fracture [Unknown]
  - Atrial fibrillation [Recovered/Resolved]
